FAERS Safety Report 12403539 (Version 2)
Quarter: 2016Q2

REPORT INFORMATION
  Report Type: Report from Study
  Country: MX (occurrence: MX)
  Receive Date: 20160525
  Receipt Date: 20160608
  Transmission Date: 20160815
  Serious: Yes (Other)
  Sender: FDA-Public Use
  Company Number: PHHY2016MX070324

PATIENT
  Age: 64 Year
  Sex: Female

DRUGS (3)
  1. TRILEPTAL [Suspect]
     Active Substance: OXCARBAZEPINE
     Dosage: 1 DF, QD (? TABLET AT NIGHT AND ? IN THE MORNING)
     Route: 048
  2. TRILEPTAL [Suspect]
     Active Substance: OXCARBAZEPINE
     Indication: SEIZURE
     Dosage: 1 DF, (1 OF 600 MG, HALF AT NIGHT AND HALF IN THE MORNING) QD
     Route: 048
  3. TRILEPTAL [Suspect]
     Active Substance: OXCARBAZEPINE
     Dosage: 0.5 DF, QOD (? TABLET (300 MG) AT NIGHT)), FOR 3 WEEKS
     Route: 048
     Dates: start: 201508

REACTIONS (6)
  - Gait disturbance [Recovered/Resolved]
  - Movement disorder [Not Recovered/Not Resolved]
  - Seizure [Recovered/Resolved]
  - Off label use [Unknown]
  - Spinal fracture [Unknown]
  - Pain [Unknown]

NARRATIVE: CASE EVENT DATE: 201508
